FAERS Safety Report 16627281 (Version 2)
Quarter: 2020Q4

REPORT INFORMATION
  Report Type: Spontaneous
  Country: JP (occurrence: JP)
  Receive Date: 20190724
  Receipt Date: 20201118
  Transmission Date: 20210113
  Serious: No
  Sender: FDA-Public Use
  Company Number: JP-JNJFOC-20190727511

PATIENT
  Age: 57 Year
  Sex: Male

DRUGS (4)
  1. CANAGLIFLOZIN [Suspect]
     Active Substance: CANAGLIFLOZIN
     Indication: PRODUCT USED FOR UNKNOWN INDICATION
     Route: 048
  2. TENELIA TABLETS 20MG [Suspect]
     Active Substance: TENELIGLIPTIN
     Route: 048
  3. OLMETEC [Concomitant]
     Active Substance: OLMESARTAN MEDOXOMIL
     Route: 048
  4. CRESTOR [Concomitant]
     Active Substance: ROSUVASTATIN CALCIUM
     Route: 048

REACTIONS (6)
  - Physical deconditioning [Unknown]
  - Diarrhoea [Unknown]
  - Vomiting [Unknown]
  - Abdominal distension [Unknown]
  - Intestinal obstruction [Unknown]
  - Eructation [Unknown]
